FAERS Safety Report 19177328 (Version 1)
Quarter: 2021Q2

REPORT INFORMATION
  Report Type: Spontaneous
  Country: US (occurrence: US)
  Receive Date: 20210425
  Receipt Date: 20210425
  Transmission Date: 20210717
  Serious: No
  Sender: FDA-Public Use
  Company Number: US-PERRIGO-20US014582

PATIENT
  Age: 74 Year
  Sex: Female
  Weight: 63.49 kg

DRUGS (10)
  1. CICLOPIROX OLAMINE. [Suspect]
     Active Substance: CICLOPIROX OLAMINE
     Indication: RASH MACULAR
  2. LYRICA [Concomitant]
     Active Substance: PREGABALIN
     Indication: TISSUE INJURY
     Dosage: UNKNOWN, UNKNOWN
     Route: 048
     Dates: start: 202008
  3. CARVEDILOL. [Concomitant]
     Active Substance: CARVEDILOL
     Indication: MYOCARDIAL INFARCTION
     Dosage: UNKNOWN, UNKNOWN
     Route: 048
     Dates: start: 2018
  4. FUROSEMIDE. [Concomitant]
     Active Substance: FUROSEMIDE
     Indication: MYOCARDIAL INFARCTION
     Dosage: UNKNOWN, UNKNOWN
     Route: 048
     Dates: start: 2018
  5. SPIRONOLACTONE. [Concomitant]
     Active Substance: SPIRONOLACTONE
     Indication: MYOCARDIAL INFARCTION
     Dosage: UNKNOWN, UNKNOWN
     Route: 048
     Dates: start: 2018
  6. CICLOPIROX OLAMINE. [Suspect]
     Active Substance: CICLOPIROX OLAMINE
     Indication: ERYTHEMA
  7. CICLOPIROX OLAMINE. [Suspect]
     Active Substance: CICLOPIROX OLAMINE
     Indication: RASH
     Dosage: SMALL AMOUNT, BID
     Route: 061
     Dates: start: 20201003, end: 20201007
  8. ATORVASTATIN CALCIUM. [Concomitant]
     Active Substance: ATORVASTATIN CALCIUM
     Indication: MYOCARDIAL INFARCTION
     Dosage: UNKNOWN, UNKNOWN
     Route: 048
     Dates: start: 2018
  9. CLOPIDOGREL [Concomitant]
     Active Substance: CLOPIDOGREL BISULFATE
     Indication: MYOCARDIAL INFARCTION
     Dosage: UNKNOWN, UNKNOWN
     Route: 048
     Dates: start: 2018
  10. ENTRESTO [Concomitant]
     Active Substance: SACUBITRIL\VALSARTAN
     Indication: MYOCARDIAL INFARCTION
     Dosage: UNKNOWN, UNKNOWN
     Route: 048
     Dates: start: 2018

REACTIONS (1)
  - Application site pain [Recovering/Resolving]

NARRATIVE: CASE EVENT DATE: 20201003
